FAERS Safety Report 16876099 (Version 45)
Quarter: 2022Q4

REPORT INFORMATION
  Report Type: Report from Study
  Country: US (occurrence: US)
  Receive Date: 20191002
  Receipt Date: 20221226
  Transmission Date: 20230113
  Serious: Yes (Hospitalization)
  Sender: FDA-Public Use
  Company Number: US-SA-2019SA031718

PATIENT
  Age: 44 Year
  Sex: Male
  Weight: 116.1 kg

DRUGS (34)
  1. ALEMTUZUMAB [Suspect]
     Active Substance: ALEMTUZUMAB
     Indication: Relapsing multiple sclerosis
     Dosage: 12 MG, QD
     Route: 041
     Dates: start: 20190325, end: 20190329
  2. VITAMIN D2 [Concomitant]
     Active Substance: ERGOCALCIFEROL
     Indication: Prophylaxis
     Dosage: 50000 OTHER
     Route: 048
     Dates: start: 20170608
  3. AMLODIPINE [Concomitant]
     Active Substance: AMLODIPINE BESYLATE
     Indication: Hypertension
     Dosage: 10 MG, UNK, QAM RF: 0
     Route: 048
     Dates: start: 2016
  4. METFORMIN [Concomitant]
     Active Substance: METFORMIN HYDROCHLORIDE
     Indication: Diabetes mellitus
     Dosage: 1000 MG
     Route: 048
     Dates: start: 2016
  5. METOPROLOL [Concomitant]
     Active Substance: METOPROLOL
     Indication: Hypertension
     Dosage: 25 MG
     Route: 048
     Dates: start: 2012, end: 20201024
  6. METOPROLOL [Concomitant]
     Active Substance: METOPROLOL
     Dosage: 50 MG, UNK
     Route: 048
     Dates: start: 20190402, end: 20190402
  7. COZAAR [Concomitant]
     Active Substance: LOSARTAN POTASSIUM
     Indication: Hypertension
     Dosage: 100 MG, UNK
     Route: 048
     Dates: start: 2012
  8. COZAAR [Concomitant]
     Active Substance: LOSARTAN POTASSIUM
     Dosage: 100 MG, QAM
     Route: 048
     Dates: start: 20190402, end: 20190402
  9. PIOGLITAZONE HYDROCHLORIDE [Concomitant]
     Active Substance: PIOGLITAZONE HYDROCHLORIDE
     Indication: Diabetes mellitus
     Dosage: 15 MG
     Route: 048
     Dates: start: 2016, end: 20190710
  10. LIPITOR [Concomitant]
     Active Substance: ATORVASTATIN CALCIUM
     Dosage: 10 MG, UNK, QAM RF: 0
     Route: 048
     Dates: start: 2012
  11. INSULIN NOS [Concomitant]
     Active Substance: INSULIN NOS
     Indication: Diabetes mellitus
     Dosage: 80 (LONG ACTING), UNK
     Route: 058
     Dates: start: 2016
  12. INSULIN NOS [Concomitant]
     Active Substance: INSULIN NOS
     Dosage: 45 (LONG ACTING)
     Route: 058
     Dates: start: 2016
  13. INSULIN NOS [Concomitant]
     Active Substance: INSULIN NOS
     Dosage: 50 (SHORT ACTING)
     Route: 058
     Dates: start: 2016
  14. INSULIN NOS [Concomitant]
     Active Substance: INSULIN NOS
     Dosage: 0.1 (SHORT ACTING)
     Route: 058
     Dates: start: 2016
  15. INSULIN NOS [Concomitant]
     Active Substance: INSULIN NOS
     Dosage: 60(LONG ACTING)
     Route: 058
     Dates: start: 20190409
  16. INSULIN NOS [Concomitant]
     Active Substance: INSULIN NOS
     Dosage: 25(SHORT ACTING)
     Route: 058
     Dates: start: 20190409
  17. JARDIANCE [Concomitant]
     Active Substance: EMPAGLIFLOZIN
     Indication: Diabetes mellitus
     Dosage: 25 MG, UNK
     Route: 048
     Dates: start: 20190409
  18. VALTREX [Concomitant]
     Active Substance: VALACYCLOVIR HYDROCHLORIDE
     Indication: Prophylaxis
     Dosage: 500 MG, QD
     Route: 048
     Dates: start: 20190325
  19. VALTREX [Concomitant]
     Active Substance: VALACYCLOVIR HYDROCHLORIDE
     Dosage: 500 UNK
     Route: 048
     Dates: start: 20190402, end: 20190403
  20. LORATADINE [Concomitant]
     Active Substance: LORATADINE
     Indication: Prophylaxis
     Dosage: 10 MG, UNK
     Route: 048
     Dates: start: 20190323, end: 20190329
  21. PRILOSEC [Concomitant]
     Active Substance: OMEPRAZOLE MAGNESIUM
     Indication: Prophylaxis
     Dosage: 20 MG, UNK
     Route: 048
     Dates: start: 20190323, end: 20190329
  22. TYLENOL [Concomitant]
     Active Substance: ACETAMINOPHEN
     Indication: Prophylaxis
     Dosage: 650 MG, UNK
     Route: 065
     Dates: start: 20190323, end: 20190329
  23. BENADRYL [Concomitant]
     Active Substance: DIPHENHYDRAMINE HYDROCHLORIDE
     Dosage: 50 MG, UNK
     Route: 042
     Dates: start: 20190325, end: 20190329
  24. IBUPROFEN [Concomitant]
     Active Substance: IBUPROFEN
     Indication: Prophylaxis
     Dosage: 400 MG, UNK
     Route: 048
     Dates: start: 20190325, end: 20190329
  25. METHYLPREDNISOLONE [Concomitant]
     Active Substance: METHYLPREDNISOLONE
     Indication: Prophylaxis
     Dosage: 1 G, UNK
     Route: 048
     Dates: start: 20190325, end: 20190329
  26. LOVENOX [Concomitant]
     Active Substance: ENOXAPARIN SODIUM
     Indication: Prophylaxis
     Dosage: 40 MG, UNK
     Route: 058
     Dates: start: 20190402, end: 20190403
  27. NOVOLOG [Concomitant]
     Active Substance: INSULIN ASPART
     Dosage: 40 UNITS,SUB-Q
     Route: 058
     Dates: start: 20190401, end: 20190403
  28. NOVOLOG [Concomitant]
     Active Substance: INSULIN ASPART
     Dosage: 135 UNK
     Route: 058
     Dates: start: 2016, end: 2017
  29. AMBIEN [Concomitant]
     Active Substance: ZOLPIDEM TARTRATE
     Indication: Insomnia
     Dosage: 10 MG QHS, PRN
     Route: 048
     Dates: start: 20190402
  30. MAALOX PLUS [ALUMINIUM HYDROXIDE GEL, DRIED;DIMETICONE;MAGNESIUM HYDRO [Concomitant]
     Indication: Dyspepsia
     Dosage: 30 ML, Q4H, PRN
     Route: 048
     Dates: start: 20190401
  31. NORVASC [Concomitant]
     Active Substance: AMLODIPINE BESYLATE
     Dosage: 10 MG QAM SOI
     Route: 065
     Dates: start: 20190402, end: 20190403
  32. DEXTROSE [Concomitant]
     Active Substance: DEXTROSE
     Indication: Hypoglycaemia
     Dosage: 25 G, PRN
     Route: 042
     Dates: start: 20190401
  33. DEXTROSE [Concomitant]
     Active Substance: DEXTROSE
     Dosage: 15 G, PRN
     Route: 048
     Dates: start: 20190401
  34. LACTATED RINGERS SOLUTION [Concomitant]
     Active Substance: CALCIUM CHLORIDE\POTASSIUM CHLORIDE\SODIUM CHLORIDE\SODIUM LACTATE
     Dosage: 1,000 MIS @ 100 MLS/HR
     Route: 042
     Dates: start: 20190401, end: 20190403

REACTIONS (40)
  - Non-cardiac chest pain [Recovered/Resolved]
  - Basedow^s disease [Recovered/Resolved]
  - Pyrexia [Recovered/Resolved]
  - Headache [Recovered/Resolved]
  - Abdominal pain [Recovered/Resolved]
  - Headache [Recovered/Resolved]
  - Headache [Recovered/Resolved]
  - Headache [Recovered/Resolved]
  - Blood potassium decreased [Recovered/Resolved]
  - Axillary mass [Recovered/Resolved]
  - Dermal cyst [Recovered/Resolved]
  - Frustration tolerance decreased [Not Recovered/Not Resolved]
  - Dehydration [Recovered/Resolved]
  - Peripheral sensorimotor neuropathy [Not Recovered/Not Resolved]
  - Intervertebral disc protrusion [Not Recovered/Not Resolved]
  - Facet joint syndrome [Not Recovered/Not Resolved]
  - Intervertebral disc degeneration [Not Recovered/Not Resolved]
  - Neuropathy peripheral [Not Recovered/Not Resolved]
  - Haemangioma of skin [Recovered/Resolved]
  - Melanocytic naevus [Recovered/Resolved]
  - Melanocytic naevus [Not Recovered/Not Resolved]
  - Hyposmia [Recovered/Resolved]
  - Hypogeusia [Recovered/Resolved]
  - Band sensation [Not Recovered/Not Resolved]
  - Haemangioma of liver [Not Recovered/Not Resolved]
  - Ageusia [Recovered/Resolved]
  - COVID-19 [Recovered/Resolved]
  - Back pain [Recovered/Resolved]
  - Back pain [Not Recovered/Not Resolved]
  - Paraesthesia [Not Recovered/Not Resolved]
  - Anxiety [Not Recovered/Not Resolved]
  - Paraesthesia [Not Recovered/Not Resolved]
  - Paraesthesia [Not Recovered/Not Resolved]
  - Pain [Not Recovered/Not Resolved]
  - Body temperature increased [Recovering/Resolving]
  - Nausea [Recovered/Resolved]
  - Vomiting [Recovered/Resolved]
  - Fatigue [Unknown]
  - Insomnia [Not Recovered/Not Resolved]
  - Neutrophil count decreased [Recovered/Resolved]

NARRATIVE: CASE EVENT DATE: 20190326
